FAERS Safety Report 7576391-X (Version None)
Quarter: 2011Q2

REPORT INFORMATION
  Report Type: 
  Country: None (occurrence: None)
  Receive Date: 20110628
  Receipt Date: 20110620
  Transmission Date: 20111010
  Serious: Yes (Other)
  Sender: FDA-Public Use
  Company Number: JP-AMGEN-JPNSP2011032304

PATIENT
  Age: 37 Year
  Sex: Female

DRUGS (3)
  1. ENBREL [Suspect]
     Dosage: AT WEEK 36, RESTARTED AT 12.5 EVERY 10 DAYS
  2. ENBREL [Suspect]
     Dosage: RESTARTED AT 12.5 MG WEEKLY ON UNKNOWN DATE
  3. ENBREL [Suspect]
     Indication: RHEUMATOID ARTHRITIS
     Dosage: 25 MG, WEEKLY

REACTIONS (1)
  - HEPATIC FUNCTION ABNORMAL [None]
